FAERS Safety Report 25929597 (Version 1)
Quarter: 2025Q4

REPORT INFORMATION
  Report Type: Spontaneous
  Country: EU (occurrence: EU)
  Receive Date: 20251016
  Receipt Date: 20251016
  Transmission Date: 20260117
  Serious: Yes (Hospitalization)
  Sender: ACCORD
  Company Number: None

PATIENT
  Age: 74 Year
  Sex: Female

DRUGS (3)
  1. MITOMYCIN [Suspect]
     Active Substance: MITOMYCIN
     Indication: Squamous cell carcinoma
     Dates: start: 20250422, end: 20250522
  2. CIPROFLOXACIN [Suspect]
     Active Substance: CIPROFLOXACIN
     Indication: Ear infection
     Dates: start: 20250521, end: 20250526
  3. XELODA [Suspect]
     Active Substance: CAPECITABINE
     Indication: Anal squamous cell carcinoma
     Dates: start: 20250422, end: 20250529

REACTIONS (2)
  - Toxic skin eruption [Recovered/Resolved]
  - Eosinophilia [Recovered/Resolved]

NARRATIVE: CASE EVENT DATE: 20250526
